FAERS Safety Report 25092172 (Version 2)
Quarter: 2025Q1

REPORT INFORMATION
  Report Type: Spontaneous
  Country: US (occurrence: US)
  Receive Date: 20250319
  Receipt Date: 20250328
  Transmission Date: 20250409
  Serious: No
  Sender: SANOFI AVENTIS
  Company Number: US-SA-2025SA078395

PATIENT
  Age: 3 Year
  Sex: Female

DRUGS (1)
  1. DUPIXENT [Suspect]
     Active Substance: DUPILUMAB
     Indication: Eczema
     Dosage: 200 MG, Q4W
     Route: 058
     Dates: start: 20240509

REACTIONS (2)
  - Rebound eczema [Unknown]
  - Inappropriate schedule of product administration [Unknown]
